FAERS Safety Report 10559417 (Version 1)
Quarter: 2014Q4

REPORT INFORMATION
  Report Type: Spontaneous
  Country: GB (occurrence: GB)
  Receive Date: 20141103
  Receipt Date: 20141103
  Transmission Date: 20150529
  Serious: Yes (Hospitalization)
  Sender: FDA-Public Use
  Company Number: GB-MYLANLABS-2014M1008935

PATIENT

DRUGS (2)
  1. WARFARIN [Suspect]
     Active Substance: WARFARIN
     Dosage: 5MG DAILY
  2. WARFARIN [Suspect]
     Active Substance: WARFARIN
     Dosage: 2MG DAILY AND THEN INCREASED TO 5MG DAILY

REACTIONS (1)
  - Deep vein thrombosis [Unknown]
